FAERS Safety Report 10362404 (Version 1)
Quarter: 2014Q1

REPORT INFORMATION
  Report Type: Spontaneous
  Country: US (occurrence: None)
  Receive Date: 20140306
  Receipt Date: 20140306
  Transmission Date: 20141002
  Serious: Yes (Hospitalization, Other)
  Sender: FDA-Public Use
  Company Number: 163-21880-13051594

PATIENT
  Age: 60 Year
  Sex: Male
  Weight: 63.5 kg

DRUGS (9)
  1. REVLIMID (LENALIDOMIDE) (15 MILLIGRAM, CAPSULES) [Suspect]
     Indication: PLASMA CELL MYELOMA
     Route: 048
     Dates: start: 201209
  2. ACYCLOVIR (ACICLOVIR) (UNKNOWN) [Concomitant]
  3. DAPSONE (DAPSONE) (TABLETS) [Concomitant]
  4. DEXAMETHASONE (DEXAMETHASONE) (TABLETS) [Concomitant]
  5. LIPITOR (ATORVASTATIN) (TABLETS) [Concomitant]
  6. MAGNESIUM (MAGNESIUM) (UNKNOWN) [Concomitant]
  7. MULTIVITAMINS (MULTIVITAMINS) (TABLETS) [Concomitant]
  8. PRILOSEC (OMEPRAZOLE) (CAPSULES) [Concomitant]
  9. VELCADE (BORTEZOMIB) (UNKNOWN) [Concomitant]

REACTIONS (2)
  - Pneumonia [None]
  - White blood cell count decreased [None]
